FAERS Safety Report 24262994 (Version 1)
Quarter: 2024Q3

REPORT INFORMATION
  Report Type: Report from Study
  Country: US (occurrence: US)
  Receive Date: 20240829
  Receipt Date: 20240829
  Transmission Date: 20241017
  Serious: Yes (Disabling)
  Sender: ROCHE
  Company Number: US-ROCHE-10000068204

PATIENT
  Age: 17 Year
  Sex: Male
  Weight: 26.3 kg

DRUGS (2)
  1. EVRYSDI [Suspect]
     Active Substance: RISDIPLAM
     Indication: Spinal muscular atrophy
     Dosage: 5MG DAILY GIVEN VIA G-TUBE?0.75 MG/ML 80 ML
     Route: 048
     Dates: start: 20210304, end: 20240302
  2. EVRYSDI [Suspect]
     Active Substance: RISDIPLAM
     Indication: Spinal muscular atrophy

REACTIONS (2)
  - Gastrointestinal disorder [Recovered/Resolved]
  - Discomfort [Recovered/Resolved]

NARRATIVE: CASE EVENT DATE: 20230801
